FAERS Safety Report 19002994 (Version 1)
Quarter: 2021Q1

REPORT INFORMATION
  Report Type: Report from Study
  Country: BR (occurrence: BR)
  Receive Date: 20210312
  Receipt Date: 20210312
  Transmission Date: 20210420
  Serious: Yes (Death, Hospitalization)
  Sender: FDA-Public Use
  Company Number: BR-JNJFOC-20210320756

PATIENT
  Age: 65 Year
  Sex: Female
  Weight: 36 kg

DRUGS (2)
  1. INFLIXIMAB, RECOMBINANT [Suspect]
     Active Substance: INFLIXIMAB
     Indication: COLITIS
     Route: 042
     Dates: start: 20201016
  2. INFLIXIMAB, RECOMBINANT [Suspect]
     Active Substance: INFLIXIMAB
     Indication: COLITIS

REACTIONS (3)
  - Aortic aneurysm [Fatal]
  - Colitis [Unknown]
  - Septic shock [Fatal]

NARRATIVE: CASE EVENT DATE: 202102
